FAERS Safety Report 9216063 (Version 1)
Quarter: 2013Q2

REPORT INFORMATION
  Report Type: Spontaneous
  Country: GB (occurrence: None)
  Receive Date: 20130402
  Receipt Date: 20130402
  Transmission Date: 20140414
  Serious: Yes (Other)
  Sender: FDA-Public Use
  Company Number: 1136993

PATIENT
  Age: 69 Year
  Sex: Female
  Weight: 70.76 kg

DRUGS (2)
  1. TAMOXIFEN [Suspect]
     Indication: BREAST LUMP REMOVAL
     Route: 048
     Dates: start: 20010101, end: 20060101
  2. TAMOXIFEN [Suspect]
     Indication: BREAST CANCER
     Route: 048
     Dates: start: 20010101, end: 20060101

REACTIONS (7)
  - Dyspnoea [None]
  - Gait disturbance [None]
  - Anosmia [None]
  - Haemorrhage [None]
  - Vaginal discharge [None]
  - Malaise [None]
  - Increased upper airway secretion [None]
